FAERS Safety Report 5852007-5 (Version None)
Quarter: 2008Q3

REPORT INFORMATION
  Report Type: 
  Country: None (occurrence: None)
  Receive Date: 20080820
  Receipt Date: 20080808
  Transmission Date: 20090109
  Serious: Yes (Life-Threatening, Hospitalization)
  Sender: FDA-Public Use
  Company Number: JP-PFIZER INC-2008067126

PATIENT
  Age: 63 Year
  Sex: Male

DRUGS (3)
  1. SU-011,248 [Suspect]
     Indication: GASTROINTESTINAL STROMAL TUMOUR
     Dosage: DAILY DOSE:50MG
     Route: 048
     Dates: start: 20080711, end: 20080801
  2. MORPHINE HCL ELIXIR [Concomitant]
     Route: 048
  3. MS CONTIN [Concomitant]
     Route: 048

REACTIONS (2)
  - HAEMOPTYSIS [None]
  - SHOCK HAEMORRHAGIC [None]
